FAERS Safety Report 4333393-4 (Version None)
Quarter: 2004Q1

REPORT INFORMATION
  Report Type: 
  Country: None (occurrence: None)
  Receive Date: 20040330
  Receipt Date: 20040319
  Transmission Date: 20041129
  Serious: Yes (Other)
  Sender: FDA-Public Use
  Company Number: 2004205020US

PATIENT
  Age: 49 Year
  Sex: Male

DRUGS (4)
  1. CELEBREX [Suspect]
     Indication: OSTEOARTHRITIS
     Dosage: 200 MG, BID
     Dates: start: 19990101
  2. ADVAIR DISKUS 100/50 [Concomitant]
  3. PRILOSEC [Concomitant]
  4. ALBUTEROL [Concomitant]

REACTIONS (1)
  - MANTLE CELL LYMPHOMA [None]
